FAERS Safety Report 24127780 (Version 1)
Quarter: 2024Q3

REPORT INFORMATION
  Report Type: Spontaneous
  Country: IN (occurrence: IN)
  Receive Date: 20240723
  Receipt Date: 20240723
  Transmission Date: 20241016
  Serious: Yes (Other)
  Sender: AMGEN
  Company Number: IN-AMGEN-INDSP2024143080

PATIENT
  Age: 36 Year
  Sex: Female
  Weight: 59 kg

DRUGS (2)
  1. APREMILAST [Suspect]
     Active Substance: APREMILAST
     Indication: Type 2 lepra reaction
     Dosage: 30 MILLIGRAM, BID
     Route: 065
  2. APREMILAST [Suspect]
     Active Substance: APREMILAST
     Indication: Off label use

REACTIONS (6)
  - Type 2 lepra reaction [Unknown]
  - Off label use [Unknown]
  - Oedema peripheral [Unknown]
  - Paraesthesia [Unknown]
  - Neuralgia [Unknown]
  - Drug ineffective for unapproved indication [Unknown]
